FAERS Safety Report 17898665 (Version 6)
Quarter: 2025Q2

REPORT INFORMATION
  Report Type: Report from Study
  Country: CA (occurrence: CA)
  Receive Date: 20200616
  Receipt Date: 20250522
  Transmission Date: 20250717
  Serious: Yes (Other)
  Sender: ROCHE
  Company Number: CA-ROCHE-2553455

PATIENT
  Age: 52 Year
  Sex: Male

DRUGS (2)
  1. OCREVUS [Suspect]
     Active Substance: OCRELIZUMAB
     Indication: Relapsing-remitting multiple sclerosis
     Route: 042
     Dates: start: 20190918
  2. OCREVUS [Suspect]
     Active Substance: OCRELIZUMAB
     Route: 042

REACTIONS (10)
  - Monoplegia [Recovered/Resolved]
  - Anxiety [Recovered/Resolved]
  - Hypoaesthesia [Unknown]
  - Chest pain [Unknown]
  - Eye disorder [Not Recovered/Not Resolved]
  - Influenza [Unknown]
  - Hypersomnia [Recovered/Resolved]
  - Muscle rigidity [Not Recovered/Not Resolved]
  - Illness [Recovered/Resolved]
  - Multiple sclerosis relapse [Not Recovered/Not Resolved]
